FAERS Safety Report 5459495-7 (Version None)
Quarter: 2007Q3

REPORT INFORMATION
  Report Type: 
  Country: None (occurrence: None)
  Receive Date: 20070919
  Receipt Date: 20070912
  Transmission Date: 20080115
  Serious: Yes (Disabling)
  Sender: FDA-Public Use
  Company Number: A0682779A

PATIENT
  Age: 41 Year
  Sex: Female

DRUGS (4)
  1. TELZIR [Suspect]
     Indication: HIV INFECTION
     Dosage: 700MG TWICE PER DAY
     Route: 048
     Dates: start: 20070613, end: 20070622
  2. RITONAVIR [Suspect]
     Indication: DRUG USE FOR UNKNOWN INDICATION
     Dosage: 100MG PER DAY
     Route: 048
  3. D4T [Concomitant]
     Dosage: 40MG UNKNOWN
     Route: 048
     Dates: start: 20020101
  4. LAMIVUDINE [Concomitant]
     Route: 048
     Dates: start: 20020101

REACTIONS (6)
  - ARTHRALGIA [None]
  - CHILLS [None]
  - OEDEMA [None]
  - PRURITUS [None]
  - PYREXIA [None]
  - RASH PAPULAR [None]
